FAERS Safety Report 4689236-2 (Version None)
Quarter: 2005Q2

REPORT INFORMATION
  Report Type: 
  Country: None (occurrence: None)
  Receive Date: 20050613
  Receipt Date: 20050406
  Transmission Date: 20051028
  Serious: Yes (Disabling)
  Sender: FDA-Public Use
  Company Number: JP-MERCK-0504USA01532

PATIENT
  Age: 75 Year
  Sex: Male

DRUGS (5)
  1. VANCOMYCIN [Suspect]
     Indication: WOUND INFECTION
     Route: 042
     Dates: start: 20050311, end: 20050322
  2. [THERAPY UNSPECIFIED] [Concomitant]
     Route: 042
     Dates: start: 20050311
  3. MADOPAR [Concomitant]
     Route: 048
  4. PEPCID RPD [Suspect]
     Indication: GASTRIC ULCER
     Route: 048
     Dates: start: 20050116, end: 20050331
  5. PEPCID RPD [Suspect]
     Route: 048
     Dates: start: 20050401, end: 20050406

REACTIONS (6)
  - DRUG LEVEL DECREASED [None]
  - GLOMERULONEPHRITIS RAPIDLY PROGRESSIVE [None]
  - HAEMATURIA [None]
  - PYREXIA [None]
  - RENAL IMPAIRMENT [None]
  - WOUND INFECTION [None]
